FAERS Safety Report 7314051-0 (Version None)
Quarter: 2011Q1

REPORT INFORMATION
  Report Type: 
  Country: None (occurrence: None)
  Receive Date: 20110225
  Receipt Date: 20100421
  Transmission Date: 20110831
  Serious: No
  Sender: FDA-Public Use
  Company Number: US-MYLANLABS-2010S1006786

PATIENT
  Age: 17 Year
  Sex: Male

DRUGS (3)
  1. ACCUTANE [Suspect]
     Route: 048
  2. ACCUTANE [Suspect]
     Indication: ACNE
     Route: 048
  3. AMNESTEEM [Suspect]
     Indication: ACNE
     Route: 048
     Dates: end: 20100330

REACTIONS (3)
  - DRY SKIN [None]
  - CHAPPED LIPS [None]
  - EPISTAXIS [None]
